FAERS Safety Report 22601837 (Version 1)
Quarter: 2023Q2

REPORT INFORMATION
  Report Type: Report from Study
  Country: IN (occurrence: None)
  Receive Date: 20230614
  Receipt Date: 20230614
  Transmission Date: 20230721
  Serious: Yes (Other)
  Sender: FDA-Public Use
  Company Number: 2023A126514

PATIENT
  Age: 20301 Day
  Sex: Female

DRUGS (6)
  1. LYNPARZA [Suspect]
     Active Substance: OLAPARIB
     Indication: Ovarian cancer
     Route: 048
  2. OLMEZEST AM [Concomitant]
     Dosage: 40/ 5 MG ONCE DAILY
  3. BISOPROLOL FUMARATE [Concomitant]
     Active Substance: BISOPROLOL FUMARATE
     Dosage: 5 MG ONCE DAILY (MORNING)
  4. ROZAVEL [Concomitant]
     Dosage: 10 MG ONCE DAILY
  5. THYROXINE [Concomitant]
     Active Substance: LEVOTHYROXINE
     Dosage: 25 MCG ONCE DAILY
  6. OLAPARIB [Concomitant]
     Active Substance: OLAPARIB
     Dosage: 150 MG ONCE DAILY

REACTIONS (1)
  - Osteoarthritis [Unknown]

NARRATIVE: CASE EVENT DATE: 20230510
